FAERS Safety Report 24816921 (Version 1)
Quarter: 2025Q1

REPORT INFORMATION
  Report Type: Spontaneous
  Country: CA (occurrence: CA)
  Receive Date: 20250108
  Receipt Date: 20250108
  Transmission Date: 20250409
  Serious: Yes (Other)
  Sender: TEVA
  Company Number: CA-TEVA-VS-3284145

PATIENT
  Age: 43 Year
  Sex: Female

DRUGS (4)
  1. METHOTREXATE SODIUM [Suspect]
     Active Substance: METHOTREXATE SODIUM
     Indication: Uveitis
     Route: 065
  2. METHOTREXATE SODIUM [Suspect]
     Active Substance: METHOTREXATE SODIUM
     Indication: Uveitis
     Route: 065
  3. METHOTREXATE SODIUM [Suspect]
     Active Substance: METHOTREXATE SODIUM
     Indication: Uveitis
     Route: 058
  4. CIMZIA [Concomitant]
     Active Substance: CERTOLIZUMAB PEGOL
     Indication: Uveitis
     Route: 065

REACTIONS (10)
  - Condition aggravated [Unknown]
  - Off label use [Unknown]
  - Drug ineffective for unapproved indication [Unknown]
  - Nausea [Unknown]
  - Diarrhoea [Unknown]
  - Fatigue [Unknown]
  - Plantar fasciitis [Unknown]
  - Intraocular pressure increased [Unknown]
  - Sacral pain [Unknown]
  - Back pain [Unknown]
